FAERS Safety Report 7438947-4 (Version None)
Quarter: 2011Q2

REPORT INFORMATION
  Report Type: 
  Country: None (occurrence: None)
  Receive Date: 20110426
  Receipt Date: 20110415
  Transmission Date: 20111010
  Serious: Yes (Life-Threatening, Other)
  Sender: FDA-Public Use
  Company Number: US-BAYER-2011-033400

PATIENT
  Sex: Female

DRUGS (1)
  1. AVELOX [Suspect]
     Indication: SINUSITIS
     Dosage: 400 MG, ONCE
     Dates: start: 20101211, end: 20101211

REACTIONS (5)
  - SWELLING FACE [None]
  - ANAPHYLACTIC REACTION [None]
  - PARAESTHESIA [None]
  - DIZZINESS [None]
  - SYNCOPE [None]
